FAERS Safety Report 20914683 (Version 1)
Quarter: 2022Q2

REPORT INFORMATION
  Report Type: Spontaneous
  Country: US (occurrence: US)
  Receive Date: 20220604
  Receipt Date: 20220604
  Transmission Date: 20220720
  Serious: No
  Sender: FDA-Public Use
  Company Number: US-SA-SAC20220523001793

PATIENT
  Sex: Female

DRUGS (15)
  1. AUBAGIO [Suspect]
     Active Substance: TERIFLUNOMIDE
     Indication: Multiple sclerosis
     Dosage: 1 DF
     Route: 048
  2. NUEDEXTA [Concomitant]
     Active Substance: DEXTROMETHORPHAN HYDROBROMIDE\QUINIDINE SULFATE
  3. ASPIRIN [Concomitant]
     Active Substance: ASPIRIN
  4. VITAMIN D NOS [Concomitant]
     Active Substance: VITAMIN D NOS
  5. ATENOLOL [Concomitant]
     Active Substance: ATENOLOL
  6. GABAPENTIN [Concomitant]
     Active Substance: GABAPENTIN
  7. LORAZEPAM [Concomitant]
     Active Substance: LORAZEPAM
  8. PRAVASTATIN [Concomitant]
     Active Substance: PRAVASTATIN
  9. VENLAFAXINE [Concomitant]
     Active Substance: VENLAFAXINE HYDROCHLORIDE
  10. TIZANIDINE [Concomitant]
     Active Substance: TIZANIDINE
  11. MODAFINIL [Concomitant]
     Active Substance: MODAFINIL
  12. VENTOLIN HFA [Concomitant]
     Active Substance: ALBUTEROL SULFATE
  13. AMOXIKLAV [Concomitant]
  14. HYDROCHLOROTHIAZIDE [Concomitant]
     Active Substance: HYDROCHLOROTHIAZIDE
  15. NORTRIPTYLINE [Concomitant]
     Active Substance: NORTRIPTYLINE

REACTIONS (1)
  - Product dose omission issue [Unknown]
